FAERS Safety Report 18131508 (Version 1)
Quarter: 2020Q3

REPORT INFORMATION
  Report Type: Other
  Country: DE (occurrence: DE)
  Receive Date: 20200810
  Receipt Date: 20200810
  Transmission Date: 20201103
  Serious: Yes (Life-Threatening, Other)
  Sender: FDA-Public Use
  Company Number: DE-GE HEALTHCARE LIFE SCIENCES-2020CSU003397

PATIENT

DRUGS (9)
  1. VISIPAQUE [Suspect]
     Active Substance: IODIXANOL
     Indication: NEPHROSTOMY
  2. CLONIDINE. [Concomitant]
     Active Substance: CLONIDINE
     Indication: DRUG WITHDRAWAL SYNDROME NEONATAL
     Dosage: 0.8 ?G/KG (DTI)
     Route: 042
  3. GENTAMYCIN [GENTAMICIN SULFATE] [Concomitant]
     Active Substance: GENTAMICIN SULFATE
     Indication: INFECTION
     Route: 042
  4. AMPICILLIN [Concomitant]
     Active Substance: AMPICILLIN
     Indication: INFECTION
     Route: 042
  5. VISIPAQUE [Suspect]
     Active Substance: IODIXANOL
     Indication: HYDRONEPHROSIS
  6. CAFFEINE CITRATE. [Concomitant]
     Active Substance: CAFFEINE CITRATE
     Indication: INFANTILE APNOEA
     Route: 042
  7. VISIPAQUE [Suspect]
     Active Substance: IODIXANOL
     Indication: GASTROINTESTINAL DISORDER
  8. VISIPAQUE [Suspect]
     Active Substance: IODIXANOL
     Indication: X-RAY GASTROINTESTINAL TRACT
     Dosage: 10 ML GASTRIC 1:1 DILUTION, ONCE
     Dates: start: 20200524, end: 20200524
  9. VISIPAQUE [Suspect]
     Active Substance: IODIXANOL
     Indication: DIAGNOSTIC PROCEDURE
     Dosage: 8 ML (UNDILUTED), ONCE
     Route: 065
     Dates: start: 20200527, end: 20200527

REACTIONS (1)
  - Methaemoglobinaemia [Not Recovered/Not Resolved]

NARRATIVE: CASE EVENT DATE: 20200527
